FAERS Safety Report 8569792-4 (Version None)
Quarter: 2012Q3

REPORT INFORMATION
  Report Type: 
  Country: None (occurrence: None)
  Receive Date: 20120803
  Receipt Date: 20120629
  Transmission Date: 20120928
  Serious: No
  Sender: FDA-Public Use
  Company Number: US-ABBOTT-12P-163-0951562-00

PATIENT
  Sex: Female
  Weight: 103.97 kg

DRUGS (4)
  1. NIASPAN [Suspect]
     Indication: BLOOD TRIGLYCERIDES INCREASED
  2. LISINOPRIL [Concomitant]
     Indication: HYPERTENSION
  3. NIASPAN [Suspect]
     Dosage: EVERY MORNING
     Dates: start: 20120101
  4. ASPIRIN [Concomitant]
     Indication: PRODUCT USED FOR UNKNOWN INDICATION

REACTIONS (5)
  - SKIN DISCOLOURATION [None]
  - RASH [None]
  - FEELING HOT [None]
  - BLOOD TRIGLYCERIDES INCREASED [None]
  - FLUSHING [None]
